FAERS Safety Report 4914884-1 (Version None)
Quarter: 2006Q1

REPORT INFORMATION
  Report Type: 
  Country: None (occurrence: None)
  Receive Date: 20060217
  Receipt Date: 20060209
  Transmission Date: 20060701
  Serious: Yes (Hospitalization, Other)
  Sender: FDA-Public Use
  Company Number: FR-SP-E2006-00621

PATIENT
  Age: 77 Year
  Sex: Female
  Weight: 57 kg

DRUGS (5)
  1. TUBERTEST [Suspect]
     Indication: TUBERCULIN TEST
     Route: 023
     Dates: start: 20060109
  2. OFLOCET (OFLOXACINE) [Concomitant]
     Dates: start: 20060102, end: 20060123
  3. HYPERIUM (RILMENIDINE) [Concomitant]
  4. TANAKAN (GINKGO BILOBA) [Concomitant]
  5. NISISCO (VALSARTAN) [Concomitant]

REACTIONS (3)
  - HYPERSENSITIVITY [None]
  - LEUKOCYTURIA [None]
  - URTICARIA [None]
